FAERS Safety Report 9378405 (Version 1)
Quarter: 2013Q3

REPORT INFORMATION
  Report Type: Spontaneous
  Country: US (occurrence: US)
  Receive Date: 20130701
  Receipt Date: 20130701
  Transmission Date: 20140515
  Serious: Yes (Other)
  Sender: FDA-Public Use
  Company Number: US-TEVA-415377USA

PATIENT
  Age: 67 Year
  Sex: Female
  Weight: 48 kg

DRUGS (10)
  1. METHOTREXATE [Suspect]
     Indication: RHEUMATOID ARTHRITIS
     Dosage: 25MG EVERY WEEK
     Route: 065
  2. INFLIXIMAB [Suspect]
     Indication: RHEUMATOID ARTHRITIS
     Dosage: 300MG (6.2 MG/KG) EVERY 8 WEEKS
     Route: 065
  3. HYDROXYCHLOROQUINE [Concomitant]
     Indication: RHEUMATOID ARTHRITIS
     Dosage: 400MG DAILY
     Route: 048
  4. PREDNISONE [Concomitant]
     Indication: RHEUMATOID ARTHRITIS
     Dosage: 130MG OVER 10 DAYS
     Route: 048
  5. METHYLPREDNISOLONE [Concomitant]
     Indication: RHEUMATOID ARTHRITIS
     Dosage: 10MG
     Route: 014
  6. FOLIC ACID [Concomitant]
     Dosage: 1MG DAILY
     Route: 048
  7. LEVOTHYROXINE SODIUM [Concomitant]
     Indication: AUTOIMMUNE THYROIDITIS
     Dosage: 88 MICROG DAILY
     Route: 048
  8. OXYCODONE [Concomitant]
     Dosage: 5MG AS NEEDED
     Route: 048
  9. ESTRADIOL [Concomitant]
     Dosage: 0.5MG DAILY
     Route: 065
  10. MEDROXYPROGESTERONE [Concomitant]
     Dosage: 2.5MG DAILY
     Route: 065

REACTIONS (1)
  - Posterior reversible encephalopathy syndrome [Recovered/Resolved]
